FAERS Safety Report 25325784 (Version 1)
Quarter: 2025Q2

REPORT INFORMATION
  Report Type: Spontaneous
  Country: CN (occurrence: CN)
  Receive Date: 20250516
  Receipt Date: 20250516
  Transmission Date: 20250717
  Serious: Yes (Other)
  Sender: NOVARTIS
  Company Number: CN-002147023-NVSC2025CN079179

PATIENT

DRUGS (2)
  1. CYCLOSPORINE [Interacting]
     Active Substance: CYCLOSPORINE
     Indication: Prophylaxis
     Route: 065
  2. GILTERITINIB [Interacting]
     Active Substance: GILTERITINIB
     Indication: Prophylaxis
     Route: 065

REACTIONS (2)
  - Enterocolitis haemorrhagic [Recovering/Resolving]
  - Drug interaction [Unknown]
